FAERS Safety Report 12896281 (Version 1)
Quarter: 2016Q4

REPORT INFORMATION
  Report Type: Spontaneous
  Country: US (occurrence: US)
  Receive Date: 20161031
  Receipt Date: 20161031
  Transmission Date: 20170207
  Serious: No
  Sender: FDA-Public Use
  Company Number: US-JAZZ-2016-US-016310

PATIENT
  Sex: Female

DRUGS (36)
  1. XYREM [Suspect]
     Active Substance: SODIUM OXYBATE
     Dosage: 5.5 G, FIRST DOSE
     Route: 048
     Dates: start: 201510
  2. KLONOPIN [Concomitant]
     Active Substance: CLONAZEPAM
  3. GABAPENTIN. [Concomitant]
     Active Substance: GABAPENTIN
  4. TUMS [Concomitant]
     Active Substance: CALCIUM CARBONATE
  5. XYREM [Suspect]
     Active Substance: SODIUM OXYBATE
     Indication: NARCOLEPSY
     Dosage: 1.5 G, BID
     Route: 048
     Dates: start: 200906, end: 200906
  6. XYREM [Suspect]
     Active Substance: SODIUM OXYBATE
     Dosage: 5 G, FIRST DOSE
     Route: 048
     Dates: start: 201111, end: 201210
  7. BENADRYL ALLERGY [Concomitant]
     Active Substance: DIPHENHYDRAMINE HYDROCHLORIDE
  8. XANAX [Concomitant]
     Active Substance: ALPRAZOLAM
  9. XYREM [Suspect]
     Active Substance: SODIUM OXYBATE
     Dosage: 4 G, SECOND DOSE
     Route: 048
     Dates: start: 201309, end: 201510
  10. ASPIRIN (E.C.) [Concomitant]
     Active Substance: ASPIRIN
  11. XYREM [Suspect]
     Active Substance: SODIUM OXYBATE
     Dosage: 4 G, SECOND DOSE
     Route: 048
     Dates: start: 201111, end: 201210
  12. XYREM [Suspect]
     Active Substance: SODIUM OXYBATE
     Dosage: 4, G SECOND DOSE
     Route: 048
     Dates: start: 201510
  13. PROVIGIL [Concomitant]
     Active Substance: MODAFINIL
  14. MARIJUANA [Concomitant]
     Active Substance: CANNABIS SATIVA SUBSP. INDICA TOP
  15. PROVENTIL HFA [Concomitant]
     Active Substance: ALBUTEROL SULFATE
  16. XYREM [Suspect]
     Active Substance: SODIUM OXYBATE
     Dosage: 5 G, FIRST DOSE
     Route: 048
     Dates: start: 201309, end: 201510
  17. MULTIVITAMINS [Concomitant]
     Active Substance: VITAMINS
  18. XYREM [Suspect]
     Active Substance: SODIUM OXYBATE
     Dosage: DOSE ADJUSTMENTS
     Route: 048
     Dates: start: 200906, end: 201111
  19. DILAUDID [Concomitant]
     Active Substance: HYDROMORPHONE HYDROCHLORIDE
  20. CALCIUM [Concomitant]
     Active Substance: CALCIUM
  21. MAGNESIUM [Concomitant]
     Active Substance: MAGNESIUM
  22. METFORMIN [Concomitant]
     Active Substance: METFORMIN HYDROCHLORIDE
  23. VITAMIN D3 [Concomitant]
     Active Substance: CHOLECALCIFEROL
  24. YAZ [Concomitant]
     Active Substance: DROSPIRENONE\ETHINYL ESTRADIOL
  25. CHANTIX [Concomitant]
     Active Substance: VARENICLINE TARTRATE
  26. LOVENOX [Concomitant]
     Active Substance: ENOXAPARIN SODIUM
  27. ZOLOFT [Concomitant]
     Active Substance: SERTRALINE HYDROCHLORIDE
  28. PRILOSEC [Concomitant]
     Active Substance: OMEPRAZOLE MAGNESIUM
  29. LORAZEPAM. [Concomitant]
     Active Substance: LORAZEPAM
  30. PERCOCET [Concomitant]
     Active Substance: ACETAMINOPHEN\OXYCODONE HYDROCHLORIDE
  31. POTASSIUM [Concomitant]
     Active Substance: POTASSIUM
  32. GLUCOSAMINE [Concomitant]
     Active Substance: GLUCOSAMINE
  33. VITAMIN C [Concomitant]
     Active Substance: ASCORBIC ACID
  34. PROVIGIL [Concomitant]
     Active Substance: MODAFINIL
  35. IBUPROFEN. [Concomitant]
     Active Substance: IBUPROFEN
  36. MELATONIN [Concomitant]
     Active Substance: MELATONIN

REACTIONS (1)
  - Unevaluable event [Unknown]
